FAERS Safety Report 13460915 (Version 1)
Quarter: 2017Q2

REPORT INFORMATION
  Report Type: Spontaneous
  Country: US (occurrence: US)
  Receive Date: 20170420
  Receipt Date: 20170420
  Transmission Date: 20170830
  Serious: Yes (Hospitalization, Other)
  Sender: FDA-Public Use
  Company Number: US-ROCHE-1921754

PATIENT
  Age: 59 Year
  Sex: Male
  Weight: 66.74 kg

DRUGS (1)
  1. XELODA [Suspect]
     Active Substance: CAPECITABINE
     Indication: NEOPLASM MALIGNANT
     Dosage: DATE OF LAST DOSE OF CAPECITABINE: 01/NOV/2016 (CAPECITABINE ON HOLD)
     Route: 048
     Dates: start: 20160301, end: 20161101

REACTIONS (5)
  - Vomiting [Unknown]
  - Renal disorder [Unknown]
  - Large intestinal obstruction [Unknown]
  - Nausea [Unknown]
  - Colon neoplasm [Unknown]

NARRATIVE: CASE EVENT DATE: 20170413
